FAERS Safety Report 11246987 (Version 1)
Quarter: 2015Q3

REPORT INFORMATION
  Report Type: Spontaneous
  Country: GB (occurrence: GB)
  Receive Date: 20150708
  Receipt Date: 20150708
  Transmission Date: 20151125
  Serious: Yes (Other)
  Sender: FDA-Public Use
  Company Number: GB-TEVA-575559ACC

PATIENT
  Age: 72 Year
  Sex: Female
  Weight: 46.27 kg

DRUGS (2)
  1. AMLODIPINE [Concomitant]
     Active Substance: AMLODIPINE BESYLATE
     Dosage: 2.5 MILLIGRAM DAILY;
  2. TRAZODONE [Suspect]
     Active Substance: TRAZODONE HYDROCHLORIDE
     Indication: DEPRESSION
     Dosage: 50 MILLIGRAM DAILY;
     Dates: start: 201503

REACTIONS (5)
  - Agitation [Unknown]
  - Depression [Unknown]
  - Dizziness postural [Unknown]
  - Vision blurred [Unknown]
  - Blood blister [Unknown]

NARRATIVE: CASE EVENT DATE: 201503
